FAERS Safety Report 6034549-5 (Version None)
Quarter: 2009Q1

REPORT INFORMATION
  Report Type: 
  Country: None (occurrence: None)
  Receive Date: 20090112
  Receipt Date: 20081218
  Transmission Date: 20090719
  Serious: Yes (Other)
  Sender: FDA-Public Use
  Company Number: JP-BAXTER-2008BH009891

PATIENT
  Age: 62 Year
  Sex: Male

DRUGS (3)
  1. EXTRANEAL [Suspect]
     Indication: RENAL FAILURE CHRONIC
     Route: 033
  2. NEUTRAL LOW-GDP GLUCOSE PERITONEAL DIALYSIS FLUID [Concomitant]
     Indication: RENAL FAILURE CHRONIC
     Route: 033
  3. GLUCOSE PERITONEAL DIALYSIS FLUID [Concomitant]
     Indication: RENAL FAILURE CHRONIC
     Route: 033

REACTIONS (1)
  - PERITONEAL DISORDER [None]
